FAERS Safety Report 8060412-4 (Version None)
Quarter: 2012Q1

REPORT INFORMATION
  Report Type: 
  Country: None (occurrence: None)
  Receive Date: 20120120
  Receipt Date: 20120111
  Transmission Date: 20120608
  Serious: Yes (Life-Threatening, Hospitalization, Other)
  Sender: FDA-Public Use
  Company Number: US-GLAXOSMITHKLINE-A0952080A

PATIENT
  Age: 46 Year
  Sex: Male
  Weight: 108 kg

DRUGS (9)
  1. FUROSEMIDE [Concomitant]
     Indication: CARDIAC FAILURE CONGESTIVE
  2. INSULIN [Concomitant]
     Indication: DIABETES MELLITUS
  3. ACTIVASE [Concomitant]
     Indication: CEREBROVASCULAR ACCIDENT
     Dates: start: 20110908
  4. COUMADIN [Concomitant]
     Indication: DEEP VEIN THROMBOSIS
  5. HEPARIN [Concomitant]
     Dosage: 5000UNIT TWICE PER DAY
     Dates: start: 20110913, end: 20110925
  6. HEPARIN [Concomitant]
     Dosage: 5000UNIT THREE TIMES PER DAY
     Dates: start: 20110925, end: 20111005
  7. ASPIRIN [Concomitant]
     Indication: CORONARY ARTERY DISEASE
  8. ARIXTRA [Suspect]
     Indication: THROMBOSIS PROPHYLAXIS
     Dosage: 2.5MG PER DAY
     Route: 058
     Dates: start: 20111005
  9. CARVEDILOL [Concomitant]
     Indication: CARDIAC FAILURE CONGESTIVE

REACTIONS (3)
  - DEEP VEIN THROMBOSIS [None]
  - OEDEMA PERIPHERAL [None]
  - DRUG INEFFECTIVE [None]
